FAERS Safety Report 7396413-9 (Version None)
Quarter: 2011Q1

REPORT INFORMATION
  Report Type: 
  Country: None (occurrence: None)
  Receive Date: 20110325
  Receipt Date: 20110315
  Transmission Date: 20110831
  Serious: No
  Sender: FDA-Public Use
  Company Number: B0707842A

PATIENT
  Age: 54 Year
  Sex: Male

DRUGS (4)
  1. PAROXETINE HYDROCHLORIDE [Suspect]
     Indication: DEPRESSION
     Dosage: 30 MG / PER DAY /
  2. INTERFERON ALFA-2B (FORMULATION UNKNOWN) (INTERFERON ALFA-2B) [Suspect]
     Indication: HEPATITIS B
     Dosage: 150 MCG / WEEKLY /
  3. CITALOPRAM (FORMULATION UNKNOWN) (CITALOPRAM) [Suspect]
     Indication: DEPRESSION
     Dosage: 10 MG / TWICE PER DAY /
  4. RIBAVIRIN [Suspect]
     Indication: HEPATITIS B
     Dosage: 800 MG / PER DAY /

REACTIONS (2)
  - CONVULSION [None]
  - SYNCOPE [None]
